FAERS Safety Report 7931738-7 (Version None)
Quarter: 2011Q4

REPORT INFORMATION
  Report Type: 
  Country: None (occurrence: None)
  Receive Date: 20111121
  Receipt Date: 20111115
  Transmission Date: 20120403
  Serious: Yes (Hospitalization)
  Sender: FDA-Public Use
  Company Number: US-US-EMD SERONO, INC.-7071106

PATIENT
  Sex: Male
  Weight: 92 kg

DRUGS (3)
  1. REBIF [Suspect]
     Indication: MULTIPLE SCLEROSIS
     Route: 058
     Dates: start: 20110415
  2. MULTI-VITAMIN [Concomitant]
  3. REBIF [Suspect]
     Route: 058
     Dates: start: 20110826

REACTIONS (3)
  - PERONEAL NERVE PALSY [None]
  - VIRAL INFECTION [None]
  - ABASIA [None]
